FAERS Safety Report 11009241 (Version 1)
Quarter: 2015Q2

REPORT INFORMATION
  Report Type: Spontaneous
  Country: FR (occurrence: FR)
  Receive Date: 20150410
  Receipt Date: 20150410
  Transmission Date: 20150821
  Serious: Yes (Other)
  Sender: FDA-Public Use
  Company Number: FR-SUN PHARMACEUTICAL INDUSTRIES LTD-2015RR-95496

PATIENT
  Age: 64 Year
  Sex: Male

DRUGS (1)
  1. CEFUROXIME. [Suspect]
     Active Substance: CEFUROXIME
     Dosage: 0.1 ML, UNK
     Route: 031

REACTIONS (4)
  - Sudden visual loss [Recovered/Resolved]
  - Retinal cyst [Recovered/Resolved]
  - Retinal toxicity [Recovered/Resolved]
  - Retinal detachment [Recovered/Resolved]
